FAERS Safety Report 15060057 (Version 2)
Quarter: 2018Q4

REPORT INFORMATION
  Report Type: Spontaneous
  Country: FR (occurrence: FR)
  Receive Date: 20180625
  Receipt Date: 20181112
  Transmission Date: 20190204
  Serious: Yes (Hospitalization)
  Sender: FDA-Public Use
  Company Number: FR-MYLANLABS-2018M1045926

PATIENT
  Age: 58 Year
  Sex: Male

DRUGS (10)
  1. FLECAINE [Suspect]
     Active Substance: FLECAINIDE
     Indication: PRODUCT USED FOR UNKNOWN INDICATION
     Dosage: UNK
     Route: 048
     Dates: start: 20170814, end: 20170814
  2. XARELTO [Suspect]
     Active Substance: RIVAROXABAN
     Indication: PRODUCT USED FOR UNKNOWN INDICATION
     Dosage: 14 DF, UNK
     Route: 048
     Dates: start: 20170814, end: 20170814
  3. IRBESARTAN. [Suspect]
     Active Substance: IRBESARTAN
     Indication: PRODUCT USED FOR UNKNOWN INDICATION
     Dosage: UNK
     Route: 048
     Dates: start: 20170814, end: 20170814
  4. FLECAINE [Suspect]
     Active Substance: FLECAINIDE
     Dosage: 20 DF, UNK
     Route: 048
  5. NOCTAMIDE [Suspect]
     Active Substance: LORMETAZEPAM
     Indication: PRODUCT USED FOR UNKNOWN INDICATION
     Dosage: 15 DF, UNK
     Route: 048
     Dates: start: 20170814, end: 20170814
  6. IRBESARTAN. [Suspect]
     Active Substance: IRBESARTAN
     Dosage: 7500 MG, UNK
     Route: 048
  7. LERCAN [Suspect]
     Active Substance: LERCANIDIPINE
     Indication: PRODUCT USED FOR UNKNOWN INDICATION
     Dosage: 50 DF, UNK
     Route: 048
     Dates: start: 20170814, end: 20170814
  8. DILTIAZEM. [Suspect]
     Active Substance: DILTIAZEM
     Indication: PRODUCT USED FOR UNKNOWN INDICATION
     Dosage: 3000 MG, UNK
     Route: 048
     Dates: start: 20170814, end: 20170814
  9. TRIMEBUTINE [Suspect]
     Active Substance: TRIMEBUTINE
     Indication: PRODUCT USED FOR UNKNOWN INDICATION
     Dosage: UNK
     Route: 048
     Dates: start: 20170814, end: 20170814
  10. TRIMEBUTINE [Suspect]
     Active Substance: TRIMEBUTINE
     Dosage: 340 MG, UNK
     Route: 048

REACTIONS (3)
  - Coma [Unknown]
  - Cardiogenic shock [Unknown]
  - Overdose [Unknown]

NARRATIVE: CASE EVENT DATE: 20170814
